FAERS Safety Report 12526185 (Version 3)
Quarter: 2016Q4

REPORT INFORMATION
  Report Type: Spontaneous
  Country: US (occurrence: US)
  Receive Date: 20160705
  Receipt Date: 20161101
  Transmission Date: 20170207
  Serious: Yes (Hospitalization)
  Sender: FDA-Public Use
  Company Number: US-PFIZER INC-2016315671

PATIENT
  Age: 69 Year
  Sex: Male
  Weight: 102 kg

DRUGS (7)
  1. SUTENT [Suspect]
     Active Substance: SUNITINIB MALATE
     Indication: RENAL NEOPLASM
     Dosage: 37.5 MG, CYCLIC (1X/DAY FOR 2 WEEKS, OFF ONE WEEK AND BACK ON 2 WEEKS)
     Route: 048
     Dates: start: 2015, end: 20160608
  2. HYDROCORTISONE. [Concomitant]
     Active Substance: HYDROCORTISONE
     Indication: HORMONE REPLACEMENT THERAPY
     Dosage: 10 MG (2 IN THE MORNING AND 1 IN THE EVENING), UNK
     Route: 048
  3. MAGNESIUM OXIDE. [Concomitant]
     Active Substance: MAGNESIUM OXIDE
     Indication: DIALYSIS
     Dosage: 200 MG, 1X/DAY
     Dates: start: 201505
  4. CALCIUM ACETATE. [Concomitant]
     Active Substance: CALCIUM ACETATE
     Indication: DIALYSIS
     Dosage: 667 MG (3 WITH EACH MEAL OR 1-2 WITH A SNACK), UNK
     Route: 048
     Dates: start: 201505
  5. SUTENT [Suspect]
     Active Substance: SUNITINIB MALATE
     Dosage: 37.5 MG, CYCLIC (1X/DAY FOR 2 WEEKS, OFF ONE WEEK AND BACK ON 2 WEEKS)
     Dates: start: 20160623
  6. ATORVASTATIN CALCIUM. [Concomitant]
     Active Substance: ATORVASTATIN CALCIUM
     Indication: BLOOD CHOLESTEROL NORMAL
     Dosage: 10 MG, 1X/DAY AT NIGHT
     Route: 048
     Dates: start: 201603
  7. AMLODIPINE [Concomitant]
     Active Substance: AMLODIPINE BESYLATE
     Indication: BLOOD PRESSURE ABNORMAL
     Dosage: 10 MG, 1X/DAY
     Dates: start: 201505

REACTIONS (4)
  - Eye disorder [Unknown]
  - Pyrexia [Recovered/Resolved]
  - Feeling abnormal [Unknown]
  - Dyspnoea [Unknown]

NARRATIVE: CASE EVENT DATE: 20160608
